FAERS Safety Report 7866291-X (Version None)
Quarter: 2011Q4

REPORT INFORMATION
  Report Type: 
  Country: None (occurrence: None)
  Receive Date: 20111028
  Receipt Date: 20110526
  Transmission Date: 20120403
  Serious: No
  Sender: FDA-Public Use
  Company Number: US-GLAXOSMITHKLINE-A0929303A

PATIENT
  Age: 74 Year
  Sex: Male

DRUGS (4)
  1. GLIPIZIDE [Concomitant]
  2. ADVAIR DISKUS 100/50 [Suspect]
     Indication: DYSPNOEA
     Dosage: 1PUFF SINGLE DOSE
     Route: 055
     Dates: start: 20110525
  3. INSULIN [Concomitant]
  4. LIPITOR [Concomitant]

REACTIONS (1)
  - EPISTAXIS [None]
